FAERS Safety Report 23393593 (Version 1)
Quarter: 2024Q1

REPORT INFORMATION
  Report Type: Spontaneous
  Country: CA (occurrence: CA)
  Receive Date: 20240111
  Receipt Date: 20240111
  Transmission Date: 20240410
  Serious: Yes (Hospitalization)
  Sender: FDA-Public Use
  Company Number: CA-PFIZER INC-202400007693

PATIENT
  Age: 78 Year
  Sex: Male
  Weight: 66 kg

DRUGS (18)
  1. CARBOPLATIN [Suspect]
     Active Substance: CARBOPLATIN
     Indication: Lung neoplasm
     Dosage: 370 MG, SINGLE
     Route: 042
  2. PEMETREXED [Suspect]
     Active Substance: PEMETREXED
     Indication: Lung neoplasm
     Dosage: 850 MG, SINGLE
     Route: 042
  3. AZOPT [Concomitant]
     Active Substance: BRINZOLAMIDE
  4. CALCIUM\CHOLECALCIFEROL [Concomitant]
     Active Substance: CALCIUM\CHOLECALCIFEROL
  5. DEXAMETHASONE [Concomitant]
     Active Substance: DEXAMETHASONE
     Route: 065
  6. FERROUS SULFATE [Concomitant]
     Active Substance: FERROUS SULFATE
  7. FOLIC ACID [Concomitant]
     Active Substance: FOLIC ACID
  8. KEYTRUDA [Concomitant]
     Active Substance: PEMBROLIZUMAB
  9. METOPROLOL [Concomitant]
     Active Substance: METOPROLOL
     Route: 065
  10. ONDANSETRON [Concomitant]
     Active Substance: ONDANSETRON
  11. PANTOPRAZOLE [Concomitant]
     Active Substance: PANTOPRAZOLE
  12. PEGFILGRASTIM [Concomitant]
     Active Substance: PEGFILGRASTIM
  13. POLYETHYLENE GLYCOLS [Concomitant]
     Active Substance: POLYETHYLENE GLYCOLS
  14. PROCHLORPERAZINE [Concomitant]
     Active Substance: PROCHLORPERAZINE
  15. RIVAROXABAN [Concomitant]
     Active Substance: RIVAROXABAN
     Route: 065
  16. TAMSULOSIN [Concomitant]
     Active Substance: TAMSULOSIN
  17. TRAVOPROST [Concomitant]
     Active Substance: TRAVOPROST
  18. CYANOCOBALAMIN [Concomitant]
     Active Substance: CYANOCOBALAMIN

REACTIONS (5)
  - Blood culture positive [Recovered/Resolved]
  - Febrile neutropenia [Recovered/Resolved]
  - Neutrophil count abnormal [Recovered/Resolved]
  - Pancytopenia [Recovered/Resolved]
  - Platelet disorder [Recovered/Resolved]
